FAERS Safety Report 16274202 (Version 2)
Quarter: 2019Q2

REPORT INFORMATION
  Report Type: Spontaneous
  Country: US (occurrence: US)
  Receive Date: 20190506
  Receipt Date: 20190517
  Transmission Date: 20190711
  Serious: No
  Sender: FDA-Public Use
  Company Number: US-BAUSCH-BL-2019-011848

PATIENT
  Age: 87 Year
  Sex: Male
  Weight: 86.26 kg

DRUGS (1)
  1. JUBLIA [Suspect]
     Active Substance: EFINACONAZOLE
     Indication: ONYCHOMYCOSIS
     Route: 061
     Dates: start: 201904

REACTIONS (3)
  - Onychomadesis [Not Recovered/Not Resolved]
  - Product administered at inappropriate site [Unknown]
  - Application site erythema [Recovering/Resolving]

NARRATIVE: CASE EVENT DATE: 201904
